FAERS Safety Report 26148626 (Version 1)
Quarter: 2025Q4

REPORT INFORMATION
  Report Type: Spontaneous
  Country: US (occurrence: None)
  Receive Date: 20251212
  Receipt Date: 20251212
  Transmission Date: 20260118
  Serious: Yes (Hospitalization, Other)
  Sender: APOTEX
  Company Number: US-APOTEX-2025AP033992

PATIENT
  Age: 56 Year
  Sex: Female

DRUGS (1)
  1. CYCLOBENZAPRINE [Suspect]
     Active Substance: CYCLOBENZAPRINE
     Indication: Back pain
     Dosage: UNK

REACTIONS (7)
  - Unresponsive to stimuli [Unknown]
  - Acute kidney injury [Recovering/Resolving]
  - Rhabdomyolysis [Unknown]
  - Fall [Unknown]
  - Intentional overdose [Unknown]
  - Lethargy [Unknown]
  - Blood creatine phosphokinase increased [Recovering/Resolving]
